FAERS Safety Report 14843762 (Version 1)
Quarter: 2018Q2

REPORT INFORMATION
  Report Type: Report from Study
  Country: BR (occurrence: BR)
  Receive Date: 20180503
  Receipt Date: 20180503
  Transmission Date: 20180711
  Serious: Yes (Other)
  Sender: FDA-Public Use
  Company Number: BR-MYLANLABS-2018M1028223

PATIENT
  Age: 55 Year
  Sex: Female

DRUGS (7)
  1. CISPLATIN. [Suspect]
     Active Substance: CISPLATIN
     Dosage: ON DAY 8
     Route: 041
  2. DOCETAXEL. [Suspect]
     Active Substance: DOCETAXEL
     Dosage: ON DAY 8
     Route: 041
  3. CISPLATIN. [Suspect]
     Active Substance: CISPLATIN
     Indication: ADENOCARCINOMA GASTRIC
     Dosage: FOR 1 HOUR AT 42 DEG C; INFUSION
     Route: 033
  4. CISPLATIN. [Suspect]
     Active Substance: CISPLATIN
     Dosage: INFUSED FOR TWO HOURS ON DAY 1 AFTER A 15 DAY PERIOD OF REST
     Route: 033
  5. DOCETAXEL. [Suspect]
     Active Substance: DOCETAXEL
     Indication: ADENOCARCINOMA GASTRIC
     Dosage: FOR 1 HOUR AT 42 DEG C; INFUSION
     Route: 033
  6. CAPECITABINE. [Suspect]
     Active Substance: CAPECITABINE
     Indication: ADENOCARCINOMA GASTRIC
     Dosage: FROM DAY 1 TO 14
     Route: 048
  7. DOCETAXEL. [Suspect]
     Active Substance: DOCETAXEL
     Dosage: INFUSED FOR TWO HOURS ON DAY 1 AFTER A 15 DAY PERIOD OF REST
     Route: 033

REACTIONS (5)
  - Upper respiratory tract infection [Unknown]
  - Myalgia [Unknown]
  - Chemical peritonitis [Unknown]
  - Neuropathy peripheral [Unknown]
  - Alopecia [Unknown]
